FAERS Safety Report 14284897 (Version 1)
Quarter: 2017Q4

REPORT INFORMATION
  Report Type: Report from Study
  Country: US (occurrence: US)
  Receive Date: 20171214
  Receipt Date: 20171214
  Transmission Date: 20180321
  Serious: Yes (Death, Hospitalization, Other)
  Sender: FDA-Public Use
  Company Number: US-ROCHE-1513371

PATIENT
  Age: 18 Year
  Sex: Female
  Weight: 48.2 kg

DRUGS (3)
  1. TEMOZOLOMIDE. [Suspect]
     Active Substance: TEMOZOLOMIDE
     Indication: MEDULLOBLASTOMA
     Dosage: LAST DOSE RECIVED ON 29/NOV/2014
     Route: 048
     Dates: start: 20141125
  2. BEVACIZUMAB. [Suspect]
     Active Substance: BEVACIZUMAB
     Indication: MEDULLOBLASTOMA
     Dosage: LAST DOSE 25/NOV/20144
     Route: 042
     Dates: start: 20141125
  3. IRINOTECAN [Suspect]
     Active Substance: IRINOTECAN
     Indication: MEDULLOBLASTOMA
     Dosage: LAST DOSE RECIVED ON 29/NOV/2014
     Route: 042
     Dates: start: 20141125

REACTIONS (5)
  - Hypokalaemia [Recovered/Resolved]
  - Disease progression [Fatal]
  - Sepsis [Recovering/Resolving]
  - Hypophosphataemia [Recovered/Resolved]
  - Hyponatraemia [Recovered/Resolved]

NARRATIVE: CASE EVENT DATE: 20141206
